FAERS Safety Report 14124347 (Version 1)
Quarter: 2017Q4

REPORT INFORMATION
  Report Type: Spontaneous
  Country: FR (occurrence: FR)
  Receive Date: 20171025
  Receipt Date: 20171025
  Transmission Date: 20180321
  Serious: Yes (Other)
  Sender: FDA-Public Use
  Company Number: FR-MERCK KGAA-2031417

PATIENT
  Age: 80 Year
  Sex: Female

DRUGS (7)
  1. OPTIVE [Concomitant]
     Active Substance: CARBOXYMETHYLCELLULOSE SODIUM\GLYCERIN
  2. NOVOTHYROX [Suspect]
     Active Substance: LEVOTHYROXINE SODIUM
     Indication: THYROIDECTOMY
  3. PRESERVISION (VITEYES) [Concomitant]
  4. VENTOLINE [Concomitant]
     Active Substance: ALBUTEROL
  5. FLECAINE [Concomitant]
     Active Substance: FLECAINIDE
  6. CRATAEGUS EXTRACT [Concomitant]
     Active Substance: HAWTHORN LEAF WITH FLOWER
  7. REPAGLINIDE. [Concomitant]
     Active Substance: REPAGLINIDE

REACTIONS (17)
  - Alopecia [None]
  - Fatigue [Recovering/Resolving]
  - Fall [None]
  - Erythema [None]
  - Myalgia [Recovering/Resolving]
  - Tremor [None]
  - Diabetes mellitus [None]
  - Pruritus [Recovering/Resolving]
  - Feeling abnormal [Recovering/Resolving]
  - Amnesia [None]
  - Asthma [None]
  - Gait disturbance [Recovering/Resolving]
  - Urticaria [Recovering/Resolving]
  - Angina pectoris [None]
  - Pain [Recovering/Resolving]
  - Disturbance in attention [None]
  - Dysgraphia [None]

NARRATIVE: CASE EVENT DATE: 2010
